FAERS Safety Report 4303836-0 (Version None)
Quarter: 2004Q1

REPORT INFORMATION
  Report Type: 
  Country: None (occurrence: None)
  Receive Date: 20040224
  Receipt Date: 20040224
  Transmission Date: 20041129
  Serious: Yes (Disabling)
  Sender: FDA-Public Use
  Company Number: None

PATIENT
  Age: 65 Year
  Sex: Female
  Weight: 70.3075 kg

DRUGS (2)
  1. LIPITOR [Suspect]
     Indication: BLOOD CHOLESTEROL INCREASED
     Dosage: PO HS
     Route: 048
  2. BLOOD PRESSURE MEDICATION [Concomitant]

REACTIONS (5)
  - ASTHENIA [None]
  - DECREASED ACTIVITY [None]
  - DIFFICULTY IN WALKING [None]
  - DISCOMFORT [None]
  - PAIN [None]
